FAERS Safety Report 18716636 (Version 1)
Quarter: 2021Q1

REPORT INFORMATION
  Report Type: Spontaneous
  Country: US (occurrence: US)
  Receive Date: 20210107
  Receipt Date: 20210107
  Transmission Date: 20210419
  Serious: No
  Sender: FDA-Public Use
  Company Number: None

PATIENT
  Age: 62 Year
  Sex: Male

DRUGS (1)
  1. CEFAZOLIN/DEXTROSE (CEFAZOLIN NA 20MG/ML/DEXTROSE 5% INJ, BAG, 100ML) [Suspect]
     Active Substance: CEFAZOLIN SODIUM
     Indication: SURGERY
     Route: 042
     Dates: start: 20191205, end: 20191205

REACTIONS (2)
  - Anaphylactic reaction [None]
  - Rash [None]

NARRATIVE: CASE EVENT DATE: 20191205
